FAERS Safety Report 23337590 (Version 1)
Quarter: 2023Q4

REPORT INFORMATION
  Report Type: Report from Study
  Country: US (occurrence: US)
  Receive Date: 20231226
  Receipt Date: 20231226
  Transmission Date: 20240109
  Serious: Yes (Hospitalization)
  Sender: FDA-Public Use
  Company Number: US-GILEAD-2023-0656240

PATIENT
  Sex: Female

DRUGS (3)
  1. AMBRISENTAN [Suspect]
     Active Substance: AMBRISENTAN
     Indication: Pulmonary arterial hypertension
     Dosage: 5 MG, QD
     Route: 065
     Dates: start: 20230607
  2. UPTRAVI [Suspect]
     Active Substance: SELEXIPAG
     Indication: Product used for unknown indication
     Dosage: 1000 UG, BID
     Route: 065
  3. TADALAFIL [Concomitant]
     Active Substance: TADALAFIL

REACTIONS (7)
  - Pleural effusion [Unknown]
  - Vomiting [Unknown]
  - Diarrhoea [Unknown]
  - Back pain [Unknown]
  - Pain in extremity [Unknown]
  - Sciatica [Unknown]
  - Discomfort [Unknown]
